FAERS Safety Report 9007882 (Version 1)
Quarter: 2013Q1

REPORT INFORMATION
  Report Type: Spontaneous
  Country: US (occurrence: US)
  Receive Date: 20130110
  Receipt Date: 20130110
  Transmission Date: 20140127
  Serious: Yes (Hospitalization)
  Sender: FDA-Public Use
  Company Number: US-009507513-1301USA002450

PATIENT
  Age: 42 Year
  Sex: Male

DRUGS (3)
  1. SINGULAIR [Suspect]
     Dosage: 10 MG, QD, PO
     Route: 048
  2. CRESTOR [Suspect]
     Indication: HYPERCHOLESTEROLAEMIA
     Dosage: 20 MG, UNK
     Route: 048
  3. VENTOLIN (ALBUTEROL SULFATE) [Concomitant]
     Indication: ASTHMA

REACTIONS (1)
  - Epistaxis [Unknown]
